FAERS Safety Report 5774268-3 (Version None)
Quarter: 2008Q2

REPORT INFORMATION
  Report Type: 
  Country: None (occurrence: None)
  Receive Date: 20080616
  Receipt Date: 20080604
  Transmission Date: 20081010
  Serious: Yes (Hospitalization)
  Sender: FDA-Public Use
  Company Number: JP-AMGEN-US283060

PATIENT
  Sex: Female
  Weight: 65 kg

DRUGS (2)
  1. ENBREL [Suspect]
     Indication: RHEUMATOID ARTHRITIS
     Route: 058
     Dates: start: 20080516, end: 20080516
  2. ISONIAZID [Concomitant]
     Indication: INFECTION
     Route: 048
     Dates: start: 20080425, end: 20080520

REACTIONS (10)
  - BRONCHITIS [None]
  - CARDIAC FAILURE [None]
  - CARDIOMEGALY [None]
  - CHILLS [None]
  - HYPOALBUMINAEMIA [None]
  - OEDEMA [None]
  - PAIN [None]
  - PLEURAL EFFUSION [None]
  - POLLAKIURIA [None]
  - PYREXIA [None]
